FAERS Safety Report 21730860 (Version 1)
Quarter: 2022Q4

REPORT INFORMATION
  Report Type: Spontaneous
  Country: TH (occurrence: TH)
  Receive Date: 20221215
  Receipt Date: 20221215
  Transmission Date: 20230112
  Serious: Yes (Death, Other)
  Sender: FDA-Public Use
  Company Number: TH-CELLTRION INC.-2022TH021049

PATIENT

DRUGS (2)
  1. TRUXIMA [Suspect]
     Active Substance: RITUXIMAB-ABBS
     Indication: Rheumatic disorder
     Dosage: UNK
     Dates: start: 201902, end: 201905
  2. TRUXIMA [Suspect]
     Active Substance: RITUXIMAB-ABBS
     Indication: Autoimmune disorder

REACTIONS (3)
  - Respiratory failure [Fatal]
  - Pneumonia cytomegaloviral [Fatal]
  - Off label use [Unknown]
